FAERS Safety Report 10471383 (Version 2)
Quarter: 2015Q1

REPORT INFORMATION
  Report Type: Spontaneous
  Country: FR (occurrence: FR)
  Receive Date: 20140923
  Receipt Date: 20150119
  Transmission Date: 20150720
  Serious: Yes (Other)
  Sender: FDA-Public Use
  Company Number: FR-ELI_LILLY_AND_COMPANY-FR201409006628

PATIENT
  Age: 62 Year
  Sex: Male
  Weight: 74 kg

DRUGS (1)
  1. CIALIS [Suspect]
     Active Substance: TADALAFIL
     Indication: ERECTILE DYSFUNCTION
     Dosage: 5 MG, UNKNOWN
     Route: 048
     Dates: start: 20140716, end: 20140730

REACTIONS (4)
  - Photopsia [Not Recovered/Not Resolved]
  - Vitreous floaters [Not Recovered/Not Resolved]
  - Visual impairment [Unknown]
  - Vitreous detachment [Not Recovered/Not Resolved]

NARRATIVE: CASE EVENT DATE: 20140730
